FAERS Safety Report 4828148-8 (Version None)
Quarter: 2005Q4

REPORT INFORMATION
  Report Type: 
  Country: None (occurrence: None)
  Receive Date: 20051110
  Receipt Date: 20051102
  Transmission Date: 20060501
  Serious: Yes (Hospitalization)
  Sender: FDA-Public Use
  Company Number: HQWYE065821MAY04

PATIENT
  Age: 61 Year
  Sex: Male

DRUGS (4)
  1. CORDARONE [Suspect]
     Indication: ATRIAL FLUTTER
     Dosage: 200 MG 1X PER 1 DAY ORAL
     Route: 048
  2. PREDNISONE [Concomitant]
  3. PREVISCAN (FLUINDIONE) [Concomitant]
  4. COMBIVENT [Concomitant]

REACTIONS (2)
  - HYPOTHYROIDISM [None]
  - PAIN [None]
